FAERS Safety Report 24866852 (Version 1)
Quarter: 2025Q1

REPORT INFORMATION
  Report Type: Spontaneous
  Country: SK (occurrence: SK)
  Receive Date: 20250121
  Receipt Date: 20250121
  Transmission Date: 20250408
  Serious: Yes (Other)
  Sender: UCB
  Company Number: SK-UCBSA-2023053755

PATIENT
  Age: 31 Year
  Sex: Male

DRUGS (17)
  1. LEVETIRACETAM [Suspect]
     Active Substance: LEVETIRACETAM
     Indication: Simple partial seizures
  2. LEVETIRACETAM [Suspect]
     Active Substance: LEVETIRACETAM
     Indication: Partial seizures
  3. LEVETIRACETAM [Suspect]
     Active Substance: LEVETIRACETAM
     Indication: Epilepsy
  4. LACOSAMIDE [Suspect]
     Active Substance: LACOSAMIDE
     Indication: Simple partial seizures
  5. LACOSAMIDE [Suspect]
     Active Substance: LACOSAMIDE
     Indication: Partial seizures
     Dosage: 400 MILLIGRAM, ONCE DAILY (QD) TRIPLE COMBINATION (FILM-COATED TABLET)
     Dates: start: 2022
  6. LACOSAMIDE [Suspect]
     Active Substance: LACOSAMIDE
     Indication: Epilepsy
  7. CARBAMAZEPINE [Suspect]
     Active Substance: CARBAMAZEPINE
     Indication: Simple partial seizures
  8. CARBAMAZEPINE [Suspect]
     Active Substance: CARBAMAZEPINE
     Indication: Partial seizures
  9. VALPROATE [Suspect]
     Active Substance: VALPROIC ACID
     Indication: Simple partial seizures
  10. VALPROATE [Suspect]
     Active Substance: VALPROIC ACID
     Indication: Partial seizures
     Dosage: 1500 MILLIGRAM, ONCE DAILY (QD) TRIPLE COMBINATION
     Dates: start: 2022
  11. VALPROATE [Suspect]
     Active Substance: VALPROIC ACID
     Indication: Epilepsy
  12. PERAMPANEL [Suspect]
     Active Substance: PERAMPANEL
     Indication: Simple partial seizures
  13. PERAMPANEL [Suspect]
     Active Substance: PERAMPANEL
     Indication: Partial seizures
     Dosage: 12 MILLIGRAM/DAY
     Dates: start: 2022
  14. PERAMPANEL [Suspect]
     Active Substance: PERAMPANEL
     Indication: Epilepsy
  15. CARBAMAZEPINE [Suspect]
     Active Substance: CARBAMAZEPINE
     Indication: Epilepsy
  16. CENOBAMATE [Concomitant]
     Active Substance: CENOBAMATE
     Indication: Epilepsy
     Dosage: 250 MILLIGRAM, ONCE DAILY (QD)
  17. CENOBAMATE [Concomitant]
     Active Substance: CENOBAMATE
     Dosage: 300 MILLIGRAM, ONCE DAILY (QD)

REACTIONS (5)
  - Psychomotor skills impaired [Recovered/Resolved]
  - Dysarthria [Recovered/Resolved]
  - Weight increased [Recovered/Resolved]
  - Multiple-drug resistance [Unknown]
  - Off label use [Unknown]
